FAERS Safety Report 9073168 (Version 1)
Quarter: 2013Q1

REPORT INFORMATION
  Report Type: Report from Study
  Country: US (occurrence: US)
  Receive Date: 20130129
  Receipt Date: 20130129
  Transmission Date: 20140127
  Serious: No
  Sender: FDA-Public Use
  Company Number: US-ABBOTT-12P-163-0924246-00

PATIENT
  Sex: Female
  Weight: 99.88 kg

DRUGS (9)
  1. HUMIRA 40 MG/0.8 ML PEN [Suspect]
     Indication: PSORIATIC ARTHROPATHY
     Dates: start: 201108, end: 201204
  2. HUMIRA 40 MG/0.8 ML PEN [Suspect]
     Dates: start: 20120419
  3. GLIMEPIRIDE [Concomitant]
     Indication: DIABETES MELLITUS
  4. GABAPENTIN [Concomitant]
     Indication: NEUROPATHY PERIPHERAL
  5. METFORMIN [Concomitant]
     Indication: DIABETES MELLITUS
  6. ASPIRIN [Concomitant]
     Indication: PROPHYLAXIS
  7. JANUVIA [Concomitant]
     Indication: DIABETES MELLITUS
  8. DIGOXIN [Concomitant]
     Indication: HEART RATE IRREGULAR
  9. UNNAMED MEDICATION [Concomitant]
     Indication: PAIN

REACTIONS (3)
  - Wound [Not Recovered/Not Resolved]
  - Wound [Not Recovered/Not Resolved]
  - Wound infection [Not Recovered/Not Resolved]
